FAERS Safety Report 13551443 (Version 1)
Quarter: 2017Q2

REPORT INFORMATION
  Report Type: Spontaneous
  Country: None (occurrence: HU)
  Receive Date: 20170516
  Receipt Date: 20170516
  Transmission Date: 20170830
  Serious: Yes (Life-Threatening, Hospitalization)
  Sender: FDA-Public Use
  Company Number: HU-VISTAPHARM, INC.-VER201705-000033

PATIENT
  Age: 27 Year
  Sex: Male

DRUGS (1)
  1. VALPROIC ACID. [Suspect]
     Active Substance: VALPROIC ACID

REACTIONS (8)
  - Brain oedema [Unknown]
  - Toxic encephalopathy [Unknown]
  - Coma [Unknown]
  - Hypernatraemia [Recovering/Resolving]
  - Bone marrow failure [Unknown]
  - Atrial fibrillation [Unknown]
  - Overdose [Recovering/Resolving]
  - Drug level increased [Recovering/Resolving]
